FAERS Safety Report 21731938 (Version 2)
Quarter: 2023Q1

REPORT INFORMATION
  Report Type: Spontaneous
  Country: US (occurrence: US)
  Receive Date: 20221215
  Receipt Date: 20230327
  Transmission Date: 20230418
  Serious: No
  Sender: FDA-Public Use
  Company Number: US-BRISTOL-MYERS SQUIBB COMPANY-2022-153344

PATIENT
  Age: 56 Year
  Sex: Female
  Weight: 65.3 kg

DRUGS (2)
  1. ABRAXANE [Suspect]
     Active Substance: PACLITAXEL
     Indication: Breast cancer female
     Dosage: DOSE : 165 MG;     FREQ : ON DAY 1, 8, 15, 21 DAY CYCLE
  2. ABRAXANE [Suspect]
     Active Substance: PACLITAXEL
     Route: 042

REACTIONS (4)
  - White blood cell count decreased [Unknown]
  - Dyspnoea [Unknown]
  - Abdominal pain [Unknown]
  - Off label use [Unknown]

NARRATIVE: CASE EVENT DATE: 20221213
